FAERS Safety Report 7171218-2 (Version None)
Quarter: 2010Q4

REPORT INFORMATION
  Report Type: 
  Country: None (occurrence: None)
  Receive Date: 20101217
  Receipt Date: 20101115
  Transmission Date: 20110411
  Serious: Yes (Other)
  Sender: FDA-Public Use
  Company Number: US-BAXTER-2010BH002567

PATIENT
  Age: 48 Year
  Sex: Female
  Weight: 72 kg

DRUGS (37)
  1. HEPARIN SODIUM INJECTION [Suspect]
     Indication: VASCULAR OPERATION
     Route: 065
     Dates: start: 20080131, end: 20080131
  2. HEPARIN SODIUM INJECTION [Suspect]
     Indication: THROMBOEMBOLECTOMY
     Route: 065
     Dates: start: 20080131, end: 20080131
  3. HEPARIN SODIUM INJECTION [Suspect]
     Route: 065
     Dates: start: 20080131, end: 20080131
  4. HEPARIN SODIUM INJECTION [Suspect]
     Route: 065
     Dates: start: 20080131, end: 20080131
  5. HEPARIN SODIUM 10,000 UNITS IN SODIUM CHLORIDE 0.45% [Suspect]
     Indication: PRODUCT USED FOR UNKNOWN INDICATION
     Route: 042
     Dates: start: 20080130, end: 20080131
  6. HEPARIN SODIUM 10,000 UNITS IN SODIUM CHLORIDE 0.45% [Suspect]
     Route: 042
     Dates: start: 20080130, end: 20080131
  7. TOPROL-XL [Concomitant]
     Indication: PRODUCT USED FOR UNKNOWN INDICATION
     Route: 065
  8. PANTOPRAZOLE [Concomitant]
     Indication: PRODUCT USED FOR UNKNOWN INDICATION
     Route: 048
  9. PROCARDIA XL [Concomitant]
     Indication: PRODUCT USED FOR UNKNOWN INDICATION
     Route: 048
  10. FLEXERIL [Concomitant]
     Indication: PRODUCT USED FOR UNKNOWN INDICATION
     Route: 048
  11. ACETYLSALICYLIC ACID [Concomitant]
     Indication: PRODUCT USED FOR UNKNOWN INDICATION
     Route: 065
  12. DARVOCET-N 100 [Concomitant]
     Indication: PRODUCT USED FOR UNKNOWN INDICATION
     Route: 065
  13. IBUPROFEN [Concomitant]
     Indication: PRODUCT USED FOR UNKNOWN INDICATION
     Route: 065
  14. HYDROMORPHONE HYDROCHLORIDE [Concomitant]
     Indication: PRODUCT USED FOR UNKNOWN INDICATION
     Route: 065
  15. MAGNESIUM SULFATE [Concomitant]
     Indication: PRODUCT USED FOR UNKNOWN INDICATION
     Route: 065
  16. POTASSIUM CHLORIDE [Concomitant]
     Indication: PRODUCT USED FOR UNKNOWN INDICATION
     Route: 065
  17. ACETAMINOPHEN AND HYDROCODONE BITARTRATE [Concomitant]
     Indication: PRODUCT USED FOR UNKNOWN INDICATION
     Route: 065
  18. HYDROMORPHONE HYDROCHLORIDE [Concomitant]
     Route: 065
  19. ONDANSETRON HYDROCHLORIDE [Concomitant]
     Indication: PRODUCT USED FOR UNKNOWN INDICATION
     Route: 065
  20. SODIUM CHLORIDE [Concomitant]
     Indication: PRODUCT USED FOR UNKNOWN INDICATION
     Route: 065
  21. NORCO [Concomitant]
     Indication: PAIN
     Route: 065
  22. ARGATROBAN [Concomitant]
     Indication: PRODUCT USED FOR UNKNOWN INDICATION
     Route: 042
  23. CLINDAMYCIN [Concomitant]
     Indication: PRODUCT USED FOR UNKNOWN INDICATION
     Route: 065
  24. INSULIN [Concomitant]
     Indication: PRODUCT USED FOR UNKNOWN INDICATION
     Route: 042
  25. ESOMEPRAZOLE [Concomitant]
     Indication: PRODUCT USED FOR UNKNOWN INDICATION
     Route: 048
  26. COMPAZINE [Concomitant]
     Indication: NAUSEA
     Route: 042
  27. LABETALOL HCL [Concomitant]
     Indication: HYPERTENSION
     Route: 042
  28. HYDRALAZINE [Concomitant]
     Indication: HYPERTENSION
     Route: 042
  29. LORAZEPAM [Concomitant]
     Indication: ANXIETY
     Route: 042
  30. NALOXONE [Concomitant]
     Indication: PRODUCT USED FOR UNKNOWN INDICATION
     Route: 042
  31. METOPROLOL [Concomitant]
     Indication: TACHYCARDIA
     Route: 042
  32. CALCIUM GLUCONATE [Concomitant]
     Indication: PRODUCT USED FOR UNKNOWN INDICATION
     Route: 042
  33. NITROGLYCERIN IN DEXTROSE 5% [Concomitant]
     Indication: PRODUCT USED FOR UNKNOWN INDICATION
     Route: 042
  34. ASPIRIN [Concomitant]
     Indication: PRODUCT USED FOR UNKNOWN INDICATION
     Route: 048
  35. ACETAMINOPHEN W/ PROPOXYPHENE HCL [Concomitant]
     Indication: PRODUCT USED FOR UNKNOWN INDICATION
     Route: 048
  36. BACTRIM DS [Concomitant]
     Indication: PRODUCT USED FOR UNKNOWN INDICATION
     Route: 048
  37. CLEOCIN [Concomitant]
     Indication: PRODUCT USED FOR UNKNOWN INDICATION
     Route: 048

REACTIONS (40)
  - ABDOMINAL PAIN [None]
  - ACUTE RESPIRATORY DISTRESS SYNDROME [None]
  - AMNESIA [None]
  - ANAEMIA [None]
  - BLOOD FIBRINOGEN DECREASED [None]
  - CARDIAC FAILURE CONGESTIVE [None]
  - CELLULITIS [None]
  - CEREBROVASCULAR ACCIDENT [None]
  - COAGULOPATHY [None]
  - CYANOSIS [None]
  - DIARRHOEA [None]
  - DYSPHAGIA [None]
  - DYSPNOEA [None]
  - FEELING COLD [None]
  - FLUID OVERLOAD [None]
  - GANGRENE [None]
  - HEADACHE [None]
  - HEPARIN-INDUCED THROMBOCYTOPENIA [None]
  - HYPERGLYCAEMIA [None]
  - HYPERVOLAEMIA [None]
  - HYPOAESTHESIA [None]
  - HYPOKINESIA [None]
  - HYPOXIA [None]
  - ISCHAEMIA [None]
  - LIVEDO RETICULARIS [None]
  - LOCALISED INFECTION [None]
  - LUNG INFILTRATION [None]
  - MENTAL STATUS CHANGES [None]
  - MUSCULAR WEAKNESS [None]
  - NECK PAIN [None]
  - NECROSIS [None]
  - PAIN [None]
  - PULMONARY OEDEMA [None]
  - PUPILS UNEQUAL [None]
  - PYREXIA [None]
  - RESPIRATORY FAILURE [None]
  - SKIN DISCOLOURATION [None]
  - TACHYCARDIA [None]
  - VENOUS THROMBOSIS LIMB [None]
  - VISION BLURRED [None]
